FAERS Safety Report 7933997-3 (Version None)
Quarter: 2011Q4

REPORT INFORMATION
  Report Type: 
  Country: None (occurrence: None)
  Receive Date: 20111122
  Receipt Date: 20111109
  Transmission Date: 20120403
  Serious: No
  Sender: FDA-Public Use
  Company Number: BR-ELI_LILLY_AND_COMPANY-BR201108005994

PATIENT
  Sex: Male
  Weight: 77 kg

DRUGS (3)
  1. CENTRUM [Concomitant]
     Indication: VITAMIN SUPPLEMENTATION
     Dosage: UNK, UNKNOWN
     Route: 065
  2. AMLODIPINE [Concomitant]
     Indication: HYPERTENSION
     Dosage: 5 MG, UNKNOWN
     Route: 065
  3. ZYPREXA [Suspect]
     Indication: NERVOUS SYSTEM DISORDER
     Dosage: 2.5 MG, QD
     Route: 048
     Dates: start: 19960101

REACTIONS (4)
  - PLATELET COUNT DECREASED [None]
  - ANAEMIA [None]
  - OFF LABEL USE [None]
  - HAEMATOCRIT DECREASED [None]
